FAERS Safety Report 8430759-8 (Version None)
Quarter: 2012Q2

REPORT INFORMATION
  Report Type: 
  Country: None (occurrence: None)
  Receive Date: 20120612
  Receipt Date: 20120531
  Transmission Date: 20120825
  Serious: Yes (Hospitalization, Other)
  Sender: FDA-Public Use
  Company Number: US-ELI_LILLY_AND_COMPANY-US201112006014

PATIENT
  Age: 53 Year
  Sex: Female

DRUGS (3)
  1. FORTEO [Suspect]
     Dosage: UNK
  2. FORTEO [Suspect]
     Indication: OSTEOPOROSIS
     Dosage: UNK UNK, UNKNOWN
     Route: 065
  3. FORTEO [Suspect]
     Dosage: UNK UNK, UNKNOWN
     Route: 065

REACTIONS (10)
  - FOOT FRACTURE [None]
  - CEREBROVASCULAR ACCIDENT [None]
  - HYPOAESTHESIA [None]
  - MALAISE [None]
  - GASTROINTESTINAL DISORDER [None]
  - CONVULSION [None]
  - BLOOD SODIUM DECREASED [None]
  - INJECTION SITE HAEMATOMA [None]
  - BLOOD CALCIUM INCREASED [None]
  - MOVEMENT DISORDER [None]
